FAERS Safety Report 9133355 (Version 1)
Quarter: 2013Q1

REPORT INFORMATION
  Report Type: Spontaneous
  Country: FR (occurrence: FR)
  Receive Date: 20130301
  Receipt Date: 20130301
  Transmission Date: 20140127
  Serious: Yes (Hospitalization)
  Sender: FDA-Public Use
  Company Number: FR-ASTRAZENECA-2013SE12098

PATIENT
  Age: 2863 Week
  Sex: Male

DRUGS (3)
  1. INEXIUM [Suspect]
     Route: 048
     Dates: start: 20121213
  2. XOLAIR [Suspect]
     Route: 058
     Dates: start: 20121213
  3. CORTANCYL [Suspect]
     Route: 048
     Dates: start: 20121213

REACTIONS (2)
  - Chest pain [Recovered/Resolved]
  - Electrocardiogram abnormal [Recovered/Resolved]
